FAERS Safety Report 6310253-0 (Version None)
Quarter: 2009Q3

REPORT INFORMATION
  Report Type: 
  Country: None (occurrence: None)
  Receive Date: 20090814
  Receipt Date: 20090812
  Transmission Date: 20100115
  Serious: No
  Sender: FDA-Public Use
  Company Number: US-B.I. PHARMACEUTICALS,INC./RIDGEFIELD-2009-BP-09563BP

PATIENT
  Sex: Male

DRUGS (3)
  1. SPIRIVA [Suspect]
     Indication: CHRONIC OBSTRUCTIVE PULMONARY DISEASE
     Dosage: 18 MCG
     Route: 055
     Dates: start: 20080101
  2. NAPROXEN [Concomitant]
     Indication: SPONDYLITIS
     Dates: start: 20050101
  3. CHANTIX [Concomitant]
     Indication: SMOKING CESSATION THERAPY

REACTIONS (1)
  - DYSPNOEA [None]
